FAERS Safety Report 22099114 (Version 12)
Quarter: 2023Q4

REPORT INFORMATION
  Report Type: Report from Study
  Country: US (occurrence: US)
  Receive Date: 20230315
  Receipt Date: 20231211
  Transmission Date: 20240110
  Serious: Yes (Hospitalization)
  Sender: FDA-Public Use
  Company Number: US-TAKEDA-2023TUS024689

PATIENT
  Sex: Female
  Weight: 82 kg

DRUGS (15)
  1. ICATIBANT [Suspect]
     Active Substance: ICATIBANT ACETATE
     Indication: Immune system disorder
     Dosage: UNK
     Route: 050
     Dates: start: 202202
  2. ICATIBANT [Suspect]
     Active Substance: ICATIBANT ACETATE
     Indication: Immune system disorder
     Dosage: UNK
     Route: 050
     Dates: start: 202202
  3. ICATIBANT [Suspect]
     Active Substance: ICATIBANT ACETATE
     Indication: Hereditary angioedema with normal C1 esterase inhibitor
     Dosage: 30 MILLIGRAM
     Route: 058
     Dates: start: 202210
  4. ICATIBANT [Suspect]
     Active Substance: ICATIBANT ACETATE
     Indication: Hereditary angioedema with normal C1 esterase inhibitor
     Dosage: 30 MILLIGRAM
     Route: 058
     Dates: start: 202210
  5. ICATIBANT [Suspect]
     Active Substance: ICATIBANT ACETATE
     Dosage: 30 MILLIGRAM
     Route: 058
     Dates: start: 202212
  6. ICATIBANT [Suspect]
     Active Substance: ICATIBANT ACETATE
     Dosage: 30 MILLIGRAM
     Route: 058
     Dates: start: 202212
  7. ICATIBANT [Suspect]
     Active Substance: ICATIBANT ACETATE
     Dosage: UNK
     Route: 050
  8. ICATIBANT [Suspect]
     Active Substance: ICATIBANT ACETATE
     Dosage: UNK
     Route: 050
  9. TAKHZYRO [Suspect]
     Active Substance: LANADELUMAB-FLYO
     Indication: Immune system disorder
     Dosage: UNK UNK, Q2WEEKS
     Route: 065
     Dates: start: 202202
  10. TAKHZYRO [Suspect]
     Active Substance: LANADELUMAB-FLYO
     Indication: Hereditary angioedema with normal C1 esterase inhibitor
     Dosage: 300 MILLIGRAM, Q2WEEKS
     Route: 058
     Dates: start: 202211
  11. TAKHZYRO [Suspect]
     Active Substance: LANADELUMAB-FLYO
     Dosage: 300 MILLIGRAM, Q2WEEKS
     Route: 058
     Dates: start: 202305
  12. PLAQUENIL [Concomitant]
     Active Substance: HYDROXYCHLOROQUINE SULFATE
     Dosage: 200 MILLIGRAM, BID
     Route: 065
  13. XOLAIR [Concomitant]
     Active Substance: OMALIZUMAB
     Indication: Angioedema
     Dosage: UNK
     Route: 065
     Dates: start: 202009
  14. TACROLIMUS [Concomitant]
     Active Substance: TACROLIMUS
     Indication: Angioedema
     Dosage: UNK
     Route: 065
     Dates: start: 202106
  15. DAPSONE [Concomitant]
     Active Substance: DAPSONE
     Indication: Angioedema
     Dosage: UNK
     Route: 065
     Dates: start: 202106

REACTIONS (6)
  - Hereditary angioedema [Recovered/Resolved]
  - Viral infection [Unknown]
  - Vertigo [Unknown]
  - Injection site urticaria [Unknown]
  - Nausea [Unknown]
  - Injection site pain [Unknown]
